FAERS Safety Report 21097708 (Version 2)
Quarter: 2022Q3

REPORT INFORMATION
  Report Type: Report from Study
  Country: US (occurrence: US)
  Receive Date: 20220719
  Receipt Date: 20220922
  Transmission Date: 20221027
  Serious: Yes (Hospitalization, Other)
  Sender: FDA-Public Use
  Company Number: US-BRISTOL-MYERS SQUIBB COMPANY-2022-070613

PATIENT
  Age: 77 Year
  Sex: Female
  Weight: 75.8 kg

DRUGS (2)
  1. REVLIMID [Suspect]
     Active Substance: LENALIDOMIDE
     Indication: Plasma cell myeloma
     Route: 048
     Dates: start: 20220416, end: 20220707
  2. REVLIMID [Suspect]
     Active Substance: LENALIDOMIDE
     Dosage: 1 CAPSULE ONCE DAILY FOR 3 WEEKS IN A ROW, THEN 1 WEEK BREAK
     Route: 065

REACTIONS (4)
  - Arthritis [Unknown]
  - Suicidal ideation [Recovering/Resolving]
  - Major depression [Recovering/Resolving]
  - Muscle spasms [Recovering/Resolving]

NARRATIVE: CASE EVENT DATE: 20220416
